FAERS Safety Report 16045715 (Version 1)
Quarter: 2019Q2

REPORT INFORMATION
  Report Type: Spontaneous
  Country: US (occurrence: US)
  Receive Date: 20190306
  Receipt Date: 20190306
  Transmission Date: 20190711
  Serious: Yes (Disabling)
  Sender: FDA-Public Use
  Company Number: None

PATIENT
  Age: 62 Year
  Sex: Female
  Weight: 62.1 kg

DRUGS (4)
  1. CRANBERRY PILLS [Concomitant]
  2. LEVAQUIN [Suspect]
     Active Substance: LEVOFLOXACIN
     Indication: CYSTITIS
     Dosage: ?          QUANTITY:10 TABLET(S);?
     Route: 048
     Dates: start: 20190218, end: 20190222
  3. VITAMINS [Concomitant]
     Active Substance: VITAMINS
  4. APPLE CIDER VINEGAR [Concomitant]
     Active Substance: APPLE CIDER VINEGAR

REACTIONS (10)
  - Musculoskeletal pain [None]
  - Fear [None]
  - Rotator cuff syndrome [None]
  - Tinnitus [None]
  - Insomnia [None]
  - Pain in extremity [None]
  - Headache [None]
  - Feeling abnormal [None]
  - Hypoaesthesia [None]
  - Dizziness [None]

NARRATIVE: CASE EVENT DATE: 20190218
